FAERS Safety Report 22299520 (Version 1)
Quarter: 2023Q2

REPORT INFORMATION
  Report Type: Spontaneous
  Country: US (occurrence: None)
  Receive Date: 20230508
  Receipt Date: 20230508
  Transmission Date: 20230722
  Serious: No
  Sender: FDA-Public Use
  Company Number: None

PATIENT
  Age: 64 Year
  Sex: Male
  Weight: 80.74 kg

DRUGS (18)
  1. JAYPIRCA [Suspect]
     Active Substance: PIRTOBRUTINIB
     Indication: Chronic lymphocytic leukaemia
     Dosage: 200MG DAILY ORAL?
     Route: 048
     Dates: start: 20230423
  2. ACYCLOVIR [Concomitant]
     Active Substance: ACYCLOVIR
  3. ALLOPURINOL [Concomitant]
     Active Substance: ALLOPURINOL
  4. AMBIEN [Concomitant]
     Active Substance: ZOLPIDEM TARTRATE
  5. BRUKINSA [Concomitant]
     Active Substance: ZANUBRUTINIB
  6. CALCIUM [Concomitant]
     Active Substance: CALCIUM
  7. CLARITIN [Concomitant]
     Active Substance: LORATADINE
  8. DEXAMETHASONE [Concomitant]
     Active Substance: DEXAMETHASONE
  9. DICLOFENAC [Concomitant]
     Active Substance: DICLOFENAC
  10. DIPHENHYDRAMINE [Concomitant]
     Active Substance: DIPHENHYDRAMINE
  11. ELIQUIS [Concomitant]
     Active Substance: APIXABAN
  12. MELATONIN [Concomitant]
     Active Substance: MELATONIN
  13. METHOTREXATE [Concomitant]
     Active Substance: METHOTREXATE
  14. MULTIVITAMIN [Concomitant]
  15. ONDANSETRON [Concomitant]
     Active Substance: ONDANSETRON
  16. REVLIMID [Concomitant]
     Active Substance: LENALIDOMIDE
  17. VALERIAN [Concomitant]
     Active Substance: VALERIAN
  18. VENCLEXTA [Concomitant]
     Active Substance: VENETOCLAX

REACTIONS (1)
  - Bone pain [None]
